FAERS Safety Report 16127499 (Version 1)
Quarter: 2019Q1

REPORT INFORMATION
  Report Type: Spontaneous
  Country: US (occurrence: US)
  Receive Date: 20190328
  Receipt Date: 20190328
  Transmission Date: 20190418
  Serious: No
  Sender: FDA-Public Use
  Company Number: US-PFIZER INC-2019122099

PATIENT

DRUGS (2)
  1. ROCURONIUM BROMIDE. [Suspect]
     Active Substance: ROCURONIUM BROMIDE
     Dosage: 30 MG, UNK, (30 MG BOLUS X2 AND MAINTAINED 4/4 TWITCHES BOTH TIMES)
  2. ROCURONIUM BROMIDE. [Suspect]
     Active Substance: ROCURONIUM BROMIDE
     Dosage: 20 MG, UNK, (A 5 ML ROC VIAL AND GAVE 20 MG)

REACTIONS (1)
  - Drug ineffective [Unknown]
